FAERS Safety Report 24416908 (Version 2)
Quarter: 2025Q1

REPORT INFORMATION
  Report Type: Spontaneous
  Country: KR (occurrence: KR)
  Receive Date: 20241009
  Receipt Date: 20250108
  Transmission Date: 20250409
  Serious: Yes (Death, Hospitalization, Other)
  Sender: MERCK
  Company Number: KR-009507513-2410KOR003024

PATIENT
  Age: 61 Year
  Sex: Male
  Weight: 72 kg

DRUGS (27)
  1. PREVYMIS [Suspect]
     Active Substance: LETERMOVIR
     Dosage: STRENGTH: 480MG/24ML, ONCE DAILY (QD)
     Route: 042
     Dates: start: 20220208, end: 20220218
  2. I.V. GLOBULIN SN [Concomitant]
     Indication: Infection prophylaxis
     Dosage: 30000 MILLIGRAM, QD
     Route: 042
     Dates: start: 20220201, end: 20220201
  3. ZOYLEX [ACICLOVIR] [Concomitant]
     Indication: Infection prophylaxis
     Dosage: 350 MILLIGRAM, BID
     Route: 042
     Dates: start: 20220201, end: 20220204
  4. ZOYLEX [ACICLOVIR] [Concomitant]
     Dosage: 375 MILLIGRAM, BID
     Route: 042
     Dates: start: 20220205, end: 20220217
  5. ALLOPURINOL [Concomitant]
     Active Substance: ALLOPURINOL
     Indication: Prophylaxis
     Dosage: 100 MILLIGRAM, TID
     Route: 048
     Dates: start: 20220201, end: 20220205
  6. THYMOGLOBULIN [Concomitant]
     Active Substance: LAPINE T-LYMPHOCYTE IMMUNE GLOBULIN
     Indication: Acute lymphocytic leukaemia
     Dosage: 93.75 MILLIGRAM, QD
     Route: 042
     Dates: start: 20220204, end: 20220205
  7. BUSULFEX [Concomitant]
     Active Substance: BUSULFAN
     Indication: Acute lymphocytic leukaemia
     Dosage: 240 MILLIGRAM, QD
     Route: 042
     Dates: start: 20220202, end: 20220204
  8. FLUDARA [Concomitant]
     Active Substance: FLUDARABINE PHOSPHATE
     Indication: Acute lymphocytic leukaemia
     Dosage: 55.8 MILLIGRAM, QD
     Route: 042
     Dates: start: 20220201, end: 20220205
  9. METHOTREXATE [Concomitant]
     Active Substance: METHOTREXATE
     Indication: Acute lymphocytic leukaemia
     Dosage: 9.35 MILLIGRAM, QD
     Route: 042
     Dates: start: 20220208, end: 20220208
  10. HYDANTOIN [PHENYTOIN] [Concomitant]
     Indication: Acute lymphocytic leukaemia
     Dosage: 100 MILLIGRAM, TID
     Route: 048
     Dates: start: 20220201, end: 20220205
  11. PFIZER LEUCOVORIN [Concomitant]
     Indication: Acute lymphocytic leukaemia
     Dosage: 18 MILLIGRAM, QD
     Route: 042
     Dates: start: 20220208, end: 20220208
  12. TACROBELL [TACROLIMUS MONOHYDRATE] [Concomitant]
     Indication: Prophylaxis against graft versus host disease
     Dosage: 2.3 MILLIGRAM, QD
     Route: 042
     Dates: start: 20220206, end: 20220209
  13. MYCAMINE [Concomitant]
     Active Substance: MICAFUNGIN SODIUM
     Indication: Antifungal prophylaxis
     Dosage: 50 MILLIGRAM, QD
     Route: 042
     Dates: start: 20220201, end: 20220218
  14. SULFAMETHOXAZOLE\TRIMETHOPRIM [Concomitant]
     Active Substance: SULFAMETHOXAZOLE\TRIMETHOPRIM
     Indication: Infection prophylaxis
     Dosage: 400 MILLIGRAM, QD
     Route: 048
     Dates: start: 20220131
  15. AMLODIPINE OROTATE [Concomitant]
     Active Substance: AMLODIPINE OROTATE
     Indication: Hypertension
     Dosage: 5 MILLIGRAM, QD
     Route: 048
     Dates: start: 20220206, end: 20220221
  16. CARVEDILOL [Concomitant]
     Active Substance: CARVEDILOL
     Indication: Hypertension
     Dosage: 50 MILLIGRAM, QD
     Route: 048
     Dates: start: 20220131, end: 20220215
  17. CARVEDILOL [Concomitant]
     Active Substance: CARVEDILOL
     Dosage: 50 MILLIGRAM, QD
     Route: 048
     Dates: start: 20220221
  18. BINICAPIN [Concomitant]
     Indication: Hypertension
     Dosage: 2 MILLIGRAM, QD
     Route: 042
     Dates: start: 20220204, end: 20220208
  19. BINICAPIN [Concomitant]
     Dosage: 2 MILLIGRAM, QD
     Route: 042
     Dates: start: 20220220
  20. EGLANDIN [Concomitant]
     Indication: Prophylaxis
     Dosage: 70 MICROGRAM, QD
     Route: 042
     Dates: start: 20220201, end: 20220204
  21. EGLANDIN [Concomitant]
     Dosage: 75 MICROGRAM, QD
     Route: 042
     Dates: start: 20220205, end: 20220218
  22. URSODIOL [Concomitant]
     Active Substance: URSODIOL
     Indication: Prophylaxis
     Dosage: 100 MILLIGRAM, TID
     Route: 048
     Dates: start: 20220131, end: 20220211
  23. NEURONTIN [Concomitant]
     Active Substance: GABAPENTIN
     Indication: Paraesthesia
     Dosage: 300 MILLIGRAM, BID
     Route: 048
     Dates: start: 20220131, end: 20220215
  24. ISONIAZID [Concomitant]
     Active Substance: ISONIAZID
     Indication: Latent tuberculosis
     Dosage: 300 MILLIGRAM, QD
     Route: 048
     Dates: start: 20220131, end: 20220215
  25. LINAGLIPTIN [Concomitant]
     Active Substance: LINAGLIPTIN
     Indication: Diabetes mellitus
     Dosage: 5 MILLIGRAM, QD
     Route: 048
     Dates: start: 20211104, end: 20220215
  26. LINAGLIPTIN [Concomitant]
     Active Substance: LINAGLIPTIN
     Dosage: 5 MILLIGRAM, QD
     Route: 048
     Dates: start: 20220221
  27. MAXIPIME [Concomitant]
     Active Substance: CEFEPIME HYDROCHLORIDE
     Indication: Pyrexia
     Dosage: 2 GRAM, BID
     Route: 042
     Dates: start: 20220203, end: 20220216

REACTIONS (1)
  - Hepatic failure [Fatal]

NARRATIVE: CASE EVENT DATE: 20220311
